FAERS Safety Report 5832641-9 (Version None)
Quarter: 2008Q3

REPORT INFORMATION
  Report Type: 
  Country: None (occurrence: None)
  Receive Date: 20080804
  Receipt Date: 20080725
  Transmission Date: 20090109
  Serious: Yes (Hospitalization, Other)
  Sender: FDA-Public Use
  Company Number: PHHY2008DE15391

PATIENT
  Sex: Female

DRUGS (2)
  1. ZOMETA [Suspect]
     Indication: METASTASES TO BONE
     Dosage: 4 MG EVERY 3 TO 4 WEEKS
     Route: 042
     Dates: start: 20050601, end: 20080601
  2. NAVELBINE [Suspect]
     Indication: BREAST CANCER METASTATIC
     Route: 042

REACTIONS (6)
  - GINGIVITIS [None]
  - IMPAIRED HEALING [None]
  - JAW OPERATION [None]
  - LOOSE TOOTH [None]
  - OSTEONECROSIS [None]
  - TOOTH EXTRACTION [None]
